FAERS Safety Report 24956842 (Version 1)
Quarter: 2025Q1

REPORT INFORMATION
  Report Type: Spontaneous
  Country: US (occurrence: US)
  Receive Date: 20250211
  Receipt Date: 20250211
  Transmission Date: 20250408
  Serious: No
  Sender: PURDUE
  Company Number: US-PURDUE-USA-2025-0315394

PATIENT
  Sex: Male

DRUGS (2)
  1. HYDROCODONE BITARTRATE [Suspect]
     Active Substance: HYDROCODONE BITARTRATE
     Indication: Neuropathy peripheral
     Route: 065
  2. METHADONE [Suspect]
     Active Substance: METHADONE HYDROCHLORIDE
     Indication: Neuropathy peripheral
     Route: 065

REACTIONS (6)
  - Aggression [Unknown]
  - Psychological abuse [Unknown]
  - Verbal abuse [Unknown]
  - Physical abuse [Unknown]
  - Abnormal behaviour [Unknown]
  - Product use in unapproved indication [Unknown]
